FAERS Safety Report 24761475 (Version 1)
Quarter: 2024Q4

REPORT INFORMATION
  Report Type: Spontaneous
  Country: US (occurrence: None)
  Receive Date: 20241220
  Receipt Date: 20241220
  Transmission Date: 20250115
  Serious: Yes (unspecified)
  Sender: Public
  Company Number: None

PATIENT
  Age: 59 Year
  Sex: Female
  Weight: 49.5 kg

DRUGS (1)
  1. XIIDRA [Suspect]
     Active Substance: LIFITEGRAST

REACTIONS (3)
  - Precancerous cells present [None]
  - Eye disorder [None]
  - Therapy cessation [None]
